FAERS Safety Report 6706923-2 (Version None)
Quarter: 2010Q2

REPORT INFORMATION
  Report Type: 
  Country: None (occurrence: None)
  Receive Date: 20100430
  Receipt Date: 20100430
  Transmission Date: 20101027
  Serious: Yes (Other)
  Sender: FDA-Public Use
  Company Number: None

PATIENT
  Age: 79 Year
  Sex: Female
  Weight: 68.0396 kg

DRUGS (1)
  1. LEVAQUIN [Suspect]
     Indication: NEPHROLITHIASIS
     Dosage: 1 EVERY DAY OTHER
     Route: 050
     Dates: start: 20100422, end: 20100424

REACTIONS (1)
  - TENDONITIS [None]
